FAERS Safety Report 16583897 (Version 2)
Quarter: 2019Q3

REPORT INFORMATION
  Report Type: Spontaneous
  Country: CA (occurrence: CA)
  Receive Date: 20190717
  Receipt Date: 20190718
  Transmission Date: 20191004
  Serious: Yes (Death)
  Sender: FDA-Public Use
  Company Number: CA-PFIZER INC-2019304215

PATIENT
  Age: 72 Year
  Sex: Male
  Weight: 60.77 kg

DRUGS (5)
  1. SERTRALINE HCL [Suspect]
     Active Substance: SERTRALINE HYDROCHLORIDE
     Indication: SCHIZOPHRENIA
     Dosage: 100 MG, 2X/DAY
  2. TRIFLUOPERAZINE [Concomitant]
     Active Substance: TRIFLUOPERAZINE HYDROCHLORIDE
     Dosage: UNK
  3. OLANZAPINE. [Suspect]
     Active Substance: OLANZAPINE
     Indication: SCHIZOPHRENIA
     Dosage: 10 MG, 1X/DAY
  4. PMS-PROCYCLIDINE [Concomitant]
     Dosage: UNK
  5. APO-GEMFIBROZIL [Concomitant]
     Active Substance: GEMFIBROZIL
     Dosage: UNK

REACTIONS (4)
  - Arteriosclerosis coronary artery [Fatal]
  - Product use in unapproved indication [Unknown]
  - Off label use [Unknown]
  - Acute coronary syndrome [Fatal]
